FAERS Safety Report 4885866-3 (Version None)
Quarter: 2006Q1

REPORT INFORMATION
  Report Type: 
  Country: None (occurrence: None)
  Receive Date: 20060117
  Receipt Date: 20060104
  Transmission Date: 20060701
  Serious: Yes (Death, Hospitalization)
  Sender: FDA-Public Use
  Company Number: EM2006-0009

PATIENT
  Age: 39 Year
  Sex: Male
  Weight: 52 kg

DRUGS (15)
  1. MACROLIN [Suspect]
     Indication: HIV INFECTION
     Dosage: 9 MIU, QD, SUBCUTAN.
     Route: 058
     Dates: start: 20041207, end: 20041211
  2. MACROLIN [Suspect]
     Indication: HIV INFECTION
     Dosage: 9 MIU, QD, SUBCUTAN.
     Route: 058
     Dates: start: 20050105, end: 20050109
  3. MACROLIN [Suspect]
     Indication: HIV INFECTION
     Dosage: 9 MIU, QD, SUBCUTAN.
     Route: 058
     Dates: start: 20050215, end: 20050219
  4. MACROLIN [Suspect]
     Indication: HIV INFECTION
     Dosage: 9 MIU, QD, SUBCUTAN.
     Route: 058
     Dates: start: 20050329, end: 20050402
  5. MACROLIN [Suspect]
     Indication: HIV INFECTION
     Dosage: 9 MIU, QD, SUBCUTAN.
     Route: 058
     Dates: start: 20050517, end: 20050521
  6. MACROLIN [Suspect]
     Indication: HIV INFECTION
     Dosage: 9 MIU, QD, SUBCUTAN.
     Route: 058
     Dates: start: 20050624, end: 20050628
  7. MACROLIN [Suspect]
     Indication: HIV INFECTION
     Dosage: 9 MIU, QD, SUBCUTAN.
     Route: 058
     Dates: start: 20050802, end: 20050806
  8. MACROLIN [Suspect]
     Indication: HIV INFECTION
     Dosage: 9 MIU, QD, SUBCUTAN.
     Route: 058
     Dates: start: 20050921, end: 20050925
  9. MACROLIN [Suspect]
  10. TELZIR [Concomitant]
  11. FUZEON [Concomitant]
  12. VIREAD [Concomitant]
  13. NORVIR [Concomitant]
  14. COMBIVIR [Concomitant]
  15. INVIRASE [Concomitant]

REACTIONS (6)
  - APLASIA [None]
  - CENTRAL NERVOUS SYSTEM LYMPHOMA [None]
  - CONFUSIONAL STATE [None]
  - HEMIPARESIS [None]
  - LYMPHOMA [None]
  - PYREXIA [None]
